FAERS Safety Report 21272211 (Version 1)
Quarter: 2022Q3

REPORT INFORMATION
  Report Type: Spontaneous
  Country: US (occurrence: US)
  Receive Date: 20220830
  Receipt Date: 20220830
  Transmission Date: 20221027
  Serious: No
  Sender: FDA-Public Use
  Company Number: US-BRAINTREE LABORATORIES, INC.-2022BTE00407

PATIENT
  Age: 74 Year
  Sex: Female
  Weight: 79.184 kg

DRUGS (17)
  1. SUTAB [Suspect]
     Active Substance: MAGNESIUM SULFATE\POTASSIUM CHLORIDE\SODIUM SULFATE
     Indication: Colonoscopy
     Dosage: 1 X 12 TABLETS, 1X
     Route: 048
     Dates: start: 20220515, end: 20220515
  2. SUTAB [Suspect]
     Active Substance: MAGNESIUM SULFATE\POTASSIUM CHLORIDE\SODIUM SULFATE
     Indication: Endoscopy
  3. JANUVIA [Concomitant]
     Active Substance: SITAGLIPTIN PHOSPHATE
     Dosage: 50 MG, 1X/DAY
     Dates: end: 20220513
  4. DESVENLAFAXINE SUCCINATE [Concomitant]
     Active Substance: DESVENLAFAXINE SUCCINATE
     Dosage: 100 MG, 1X/DAY AT BEDTIME
     Dates: end: 20220513
  5. LEVOTHYROXINE [Concomitant]
     Active Substance: LEVOTHYROXINE
     Dosage: 100 ?G, 1X/DAY
     Dates: end: 20220513
  6. LISINOPRIL [Concomitant]
     Active Substance: LISINOPRIL
     Dosage: 10 MG, 1X/DAY IN THE MORNING
     Dates: end: 20220513
  7. MONTELUKAST [Concomitant]
     Active Substance: MONTELUKAST SODIUM
     Dosage: 10 MG, 1X/DAY AT BEDTIME
     Dates: end: 20220513
  8. PRAVASTATIN [Concomitant]
     Active Substance: PRAVASTATIN
     Dosage: 20 MG, 1X/DAY AT BEDTIME
     Dates: end: 20220513
  9. TRIAMTERENE AND HCTZ [Concomitant]
     Dosage: 1 DOSAGE FORM, 1X/DAY AT LUNCHTIME
     Dates: end: 20220513
  10. CALTRATE BONE HEALTH PLUS MINERAL [Concomitant]
     Dosage: 1 DOSAGE FORM
     Dates: end: 20220513
  11. CQ 10 [Concomitant]
     Dosage: 200 MG
     Dates: end: 20220513
  12. CRANBERRY WITH VITAMIN C [Concomitant]
     Dosage: 4200 MG
     Dates: end: 20220513
  13. FOLIC ACID [Concomitant]
     Active Substance: FOLIC ACID
     Dosage: 800 ?G ^NOT DAILY^
     Dates: end: 20220513
  14. FOLIC (AND SOMETHING UNINTELLIGIBLE) MIX [Concomitant]
     Dosage: 2 DOSAGE FORM, 1X/DAY
     Dates: end: 20220513
  15. OMEGA 3 KRILL [Concomitant]
     Dosage: 500 MG, 1X/DAY
     Dates: end: 20220513
  16. POTASSIUM [Concomitant]
     Active Substance: POTASSIUM
     Dosage: 99 MG, 1X/DAY
     Dates: end: 20220513
  17. ZYRTEC [Concomitant]
     Active Substance: CETIRIZINE HYDROCHLORIDE
     Dosage: 10 MG, 1X/DAY
     Dates: end: 20220513

REACTIONS (6)
  - Discomfort [Recovered/Resolved]
  - Pain [Recovered/Resolved]
  - Weight decreased [Recovering/Resolving]
  - Nausea [Recovered/Resolved]
  - Vomiting [Recovered/Resolved]
  - Abdominal distension [Recovered/Resolved]

NARRATIVE: CASE EVENT DATE: 20220515
